FAERS Safety Report 15404558 (Version 1)
Quarter: 2018Q4

REPORT INFORMATION
  Report Type: Spontaneous
  Country: GB (occurrence: GB)
  Receive Date: 20180919
  Receipt Date: 20180919
  Transmission Date: 20190204
  Serious: Yes (Hospitalization)
  Sender: FDA-Public Use
  Company Number: GB-ANIPHARMA-2018-UK-000105

PATIENT
  Age: 83 Year
  Sex: Male
  Weight: 62 kg

DRUGS (4)
  1. RAMIPRIL. [Concomitant]
     Active Substance: RAMIPRIL
     Dosage: UNK
     Route: 065
  2. PROSTAP - SLOW RELEASE [Suspect]
     Active Substance: LEUPROLIDE ACETATE
     Dosage: 11.25 UG/INHAL UNK
     Route: 058
     Dates: start: 20180531
  3. BICALUTAMIDE. [Suspect]
     Active Substance: BICALUTAMIDE
     Indication: PROSTATE CANCER METASTATIC
     Dosage: 50 MG DAILY
     Route: 048
     Dates: start: 20180518
  4. AMLODIPINE [Concomitant]
     Active Substance: AMLODIPINE BESYLATE
     Dosage: UNK
     Route: 065

REACTIONS (10)
  - Urine flow decreased [Unknown]
  - Generalised tonic-clonic seizure [Unknown]
  - Unresponsive to stimuli [Unknown]
  - Headache [Unknown]
  - Urinary retention [Unknown]
  - Adrenal insufficiency [Unknown]
  - Hypopituitarism [Unknown]
  - Hyponatraemia [Unknown]
  - Nausea [Unknown]
  - Insomnia [Unknown]
